FAERS Safety Report 17043751 (Version 1)
Quarter: 2019Q4

REPORT INFORMATION
  Report Type: Spontaneous
  Country: US (occurrence: US)
  Receive Date: 20191115
  Receipt Date: 20191115
  Transmission Date: 20200122
  Serious: Yes (Death, Life-Threatening, Hospitalization, Disabling)
  Sender: FDA-Public Use
  Company Number: None

PATIENT
  Age: 56 Year
  Sex: Male
  Weight: 59.9 kg

DRUGS (8)
  1. AZITHROMYCIN ANHYDROUS. [Concomitant]
     Active Substance: AZITHROMYCIN ANHYDROUS
     Dates: start: 20190605, end: 20190605
  2. OCTREOTIDE. [Concomitant]
     Active Substance: OCTREOTIDE
     Dates: start: 20190605, end: 20190605
  3. ANDEXXA [Suspect]
     Active Substance: ANDEXANET ALFA
     Indication: CEREBRAL HAEMORRHAGE
     Dosage: ?          OTHER FREQUENCY:ONCE;?
     Route: 042
     Dates: start: 20190605, end: 20190605
  4. VANCOMYCIN [Concomitant]
     Active Substance: VANCOMYCIN
     Dates: start: 20190605, end: 20190606
  5. CEFTRIAXONE. [Concomitant]
     Active Substance: CEFTRIAXONE
     Dates: start: 20190605, end: 20190606
  6. DEXTROSE 50% BOLUS [Concomitant]
     Dates: start: 20190605, end: 20190605
  7. RIVAROXABAN [Suspect]
     Active Substance: RIVAROXABAN
  8. IOHEXOL [Concomitant]
     Active Substance: IOHEXOL
     Dates: start: 20190605, end: 20190605

REACTIONS (2)
  - Cerebral infarction [None]
  - Cerebral haemorrhage [None]

NARRATIVE: CASE EVENT DATE: 20190606
